FAERS Safety Report 6046458-6 (Version None)
Quarter: 2009Q1

REPORT INFORMATION
  Report Type: 
  Country: None (occurrence: None)
  Receive Date: 20090122
  Receipt Date: 20090116
  Transmission Date: 20090719
  Serious: Yes (Death)
  Sender: FDA-Public Use
  Company Number: JP-AVENTIS-200910092JP

PATIENT
  Age: 87 Year
  Sex: Female
  Weight: 32.7 kg

DRUGS (4)
  1. LANTUS [Suspect]
     Route: 058
  2. SEIBULE [Concomitant]
     Dosage: DOSE: 50 MG
     Route: 048
     Dates: start: 20070423
  3. TAKAMIZIN [Concomitant]
     Dosage: DOSE: 400MG
     Route: 048
     Dates: start: 20070521
  4. MAGNESIUM OXIDE [Concomitant]
     Dosage: DOSE: 2 TABLET
     Route: 048
     Dates: start: 20070507

REACTIONS (1)
  - DEATH [None]
